FAERS Safety Report 9952622 (Version 4)
Quarter: 2014Q1

REPORT INFORMATION
  Report Type: Spontaneous
  Country: JP (occurrence: JP)
  Receive Date: 20140304
  Receipt Date: 20140325
  Transmission Date: 20141002
  Serious: Yes (Death, Other)
  Sender: FDA-Public Use
  Company Number: JP-PFIZER INC-2014041918

PATIENT
  Age: 90 Year
  Sex: Female

DRUGS (2)
  1. LYRICA [Suspect]
     Indication: SPINAL COLUMN STENOSIS
     Dosage: 25 MG/DAY
     Route: 048
     Dates: start: 20140203, end: 20140209
  2. LYRICA [Suspect]
     Dosage: 75 MG/DAY
     Route: 048
     Dates: start: 20140210, end: 20140213

REACTIONS (6)
  - Hepatic failure [Fatal]
  - Liver function test abnormal [Unknown]
  - Jaundice [Unknown]
  - Metastases to liver [Unknown]
  - Ascites [Unknown]
  - Oedema [Unknown]
